FAERS Safety Report 8484766-X (Version None)
Quarter: 2012Q3

REPORT INFORMATION
  Report Type: 
  Country: None (occurrence: None)
  Receive Date: 20120703
  Receipt Date: 20120629
  Transmission Date: 20120928
  Serious: Yes (Other)
  Sender: FDA-Public Use
  Company Number: US-SANOFI-AVENTIS-2012SA045828

PATIENT
  Age: 84 Year
  Sex: Male

DRUGS (11)
  1. MULTAQ [Suspect]
     Indication: ATRIAL FIBRILLATION
     Route: 048
     Dates: start: 20110401
  2. ASPIRIN [Concomitant]
  3. ROSUVASTATIN [Concomitant]
  4. VITAMIN D [Concomitant]
  5. ASCORBIC ACID [Concomitant]
  6. ALPHAGAN [Concomitant]
  7. LUMIGAN [Concomitant]
  8. LOTEMAX [Concomitant]
  9. ISOSORBIDE [Concomitant]
  10. MULTIVITAMIN [Concomitant]
  11. WARFARIN SODIUM [Concomitant]

REACTIONS (3)
  - GLAUCOMA [None]
  - OCULAR HYPERAEMIA [None]
  - CONDITION AGGRAVATED [None]
